FAERS Safety Report 7877055 (Version 2)
Quarter: 2012Q4

REPORT INFORMATION
  Report Type: 
  Country: TR (occurrence: TR)
  Receive Date: 20110330
  Receipt Date: 20120924
  Transmission Date: 20130627
  Serious: Yes (Death, Hospitalization)
  Sender: FDA-Public Use
  Company Number: TR-AMGEN-TURSP2011016087

PATIENT
  Age: 52 Year
  Sex: Male

DRUGS (1)
  1. ENBREL [Suspect]
     Indication: PSORIASIS
     Dosage: 25 mg, 2x/week
     Route: 058
     Dates: start: 20100316

REACTIONS (5)
  - Death [Fatal]
  - Diarrhoea haemorrhagic [Unknown]
  - Angina pectoris [Unknown]
  - Haematemesis [Unknown]
  - Influenza [Unknown]
